FAERS Safety Report 8602597-4 (Version None)
Quarter: 2012Q3

REPORT INFORMATION
  Report Type: 
  Country: None (occurrence: None)
  Receive Date: 20120817
  Receipt Date: 20120810
  Transmission Date: 20120928
  Serious: Yes (Other)
  Sender: FDA-Public Use
  Company Number: JP-FOUGERA-2012FO001226

PATIENT
  Age: 33 Year
  Sex: Male

DRUGS (2)
  1. PANDEL [Suspect]
     Indication: DERMATITIS ATOPIC
     Dates: start: 19930716
  2. HYDROCORTISONE ACETATE [Suspect]
     Indication: DERMATITIS ATOPIC
     Dates: start: 19951208, end: 19960312

REACTIONS (1)
  - GLAUCOMA [None]
